FAERS Safety Report 5938335-3 (Version None)
Quarter: 2008Q4

REPORT INFORMATION
  Report Type: 
  Country: None (occurrence: None)
  Receive Date: 20081103
  Receipt Date: 20081026
  Transmission Date: 20090506
  Serious: Yes (Other)
  Sender: FDA-Public Use
  Company Number: AU-JNJFOC-20080905309

PATIENT
  Sex: Female

DRUGS (2)
  1. TOPIRAMATE [Suspect]
     Indication: PATERNAL DRUGS AFFECTING FOETUS
     Route: 067
  2. TRAMADOL HCL [Suspect]
     Indication: PATERNAL DRUGS AFFECTING FOETUS
     Route: 067

REACTIONS (2)
  - BLIGHTED OVUM [None]
  - DRUG EXPOSURE DURING PREGNANCY [None]
